FAERS Safety Report 5286276-X (Version None)
Quarter: 2007Q1

REPORT INFORMATION
  Report Type: 
  Country: None (occurrence: None)
  Receive Date: 20070116
  Receipt Date: 20061207
  Transmission Date: 20070707
  Serious: No
  Sender: FDA-Public Use
  Company Number: 2006SP004335

PATIENT
  Age: 64 Year
  Sex: Female
  Weight: 88.4514 kg

DRUGS (6)
  1. LUNESTA [Suspect]
     Indication: INSOMNIA
     Dosage: 3 MG;1X;ORAL
     Route: 048
     Dates: start: 20061206, end: 20061206
  2. SONATA [Concomitant]
  3. NORTRIPTYLINE HCL [Concomitant]
  4. MIRTAZAPINE [Concomitant]
  5. WELLBUTRIN [Concomitant]
  6. LEXAPRO [Concomitant]

REACTIONS (1)
  - DYSGEUSIA [None]
